FAERS Safety Report 21177251 (Version 1)
Quarter: 2022Q3

REPORT INFORMATION
  Report Type: Spontaneous
  Country: US (occurrence: None)
  Receive Date: 20220804
  Receipt Date: 20220804
  Transmission Date: 20221027
  Serious: Yes (unspecified)
  Sender: FDA-Public Use
  Company Number: None

PATIENT
  Age: 56 Year
  Sex: Female
  Weight: 63 kg

DRUGS (17)
  1. MYCOSTATIN [Suspect]
     Active Substance: NYSTATIN
     Indication: Oral candidiasis
     Dosage: OTHER QUANTITY : 5 ML;?OTHER FREQUENCY : FIVE TIMES PER DAY;?
     Route: 048
     Dates: start: 20220715, end: 20220715
  2. LEVOTHYROXINE [Concomitant]
     Active Substance: LEVOTHYROXINE
  3. NALTREXONE [Concomitant]
     Active Substance: NALTREXONE
  4. ESTROGENS [Concomitant]
     Active Substance: ESTROGENS
  5. INOSITOL [Concomitant]
     Active Substance: INOSITOL
  6. ASCORBIC ACID [Concomitant]
     Active Substance: ASCORBIC ACID
  7. VITAMIN B COMPLEX [Concomitant]
     Active Substance: CYANOCOBALAMIN\DEXPANTHENOL\NIACINAMIDE\PYRIDOXINE HYDROCHLORIDE\RIBOFLAVIN 5^-PHOSPHATE SODIUM\THIA
  8. BIOTIN [Concomitant]
     Active Substance: BIOTIN
  9. HERBALS [Concomitant]
     Active Substance: HERBALS
  10. MAGNESIUM [Concomitant]
     Active Substance: MAGNESIUM
  11. SELENOMETHIONINE [Concomitant]
     Active Substance: SELENOMETHIONINE
  12. PRASTERONE [Concomitant]
     Active Substance: PRASTERONE
  13. PROBIOTICS NOS [Concomitant]
     Active Substance: PROBIOTICS NOS
  14. LICORICE TEA [Concomitant]
  15. BLACK SEED OIL [Concomitant]
  16. BORON [Concomitant]
     Active Substance: BORON
  17. CALCIUM [Concomitant]

REACTIONS (2)
  - Rash macular [None]
  - Rash [None]

NARRATIVE: CASE EVENT DATE: 20220715
